FAERS Safety Report 5104156-7 (Version None)
Quarter: 2006Q3

REPORT INFORMATION
  Report Type: 
  Country: None (occurrence: None)
  Receive Date: 20060908
  Receipt Date: 20060906
  Transmission Date: 20061208
  Serious: Yes (Death, Hospitalization)
  Sender: FDA-Public Use
  Company Number: NLWYE717312JUN06

PATIENT
  Age: 60 Year
  Sex: Male

DRUGS (12)
  1. RAPAMUNE [Suspect]
     Indication: RENAL TRANSPLANT
     Dosage: 4 MG 1X PER 1 DAY; 8 MG 1X PER 1 DAY
     Dates: start: 20060512, end: 20060512
  2. RAPAMUNE [Suspect]
     Indication: RENAL TRANSPLANT
     Dosage: 4 MG 1X PER 1 DAY; 8 MG 1X PER 1 DAY
     Dates: start: 20060513, end: 20060523
  3. PREDNISONE TAB [Concomitant]
  4. METOPROLOL TARTRATE [Concomitant]
  5. ALLOPURINOL [Concomitant]
  6. MOTENS (LACIDIPINE) [Concomitant]
  7. FERROFUMARAT (FERROUS FUMARATE) [Concomitant]
  8. FUROSEMIDE [Concomitant]
  9. INSULIN (INSULIN) [Concomitant]
  10. ACETAMINOPHEN [Concomitant]
  11. ARANESP [Concomitant]
  12. SIMVASTATIN [Concomitant]

REACTIONS (4)
  - GENERAL PHYSICAL HEALTH DETERIORATION [None]
  - LUNG INFILTRATION [None]
  - PNEUMONITIS [None]
  - RESPIRATORY FAILURE [None]
